FAERS Safety Report 24856608 (Version 1)
Quarter: 2025Q1

REPORT INFORMATION
  Report Type: Spontaneous
  Country: US (occurrence: None)
  Receive Date: 20250116
  Receipt Date: 20250116
  Transmission Date: 20250409
  Serious: Yes (Life-Threatening, Other)
  Sender: FDA-CTU
  Company Number: None

PATIENT
  Age: 42 Year
  Sex: Female
  Weight: 63 kg

DRUGS (2)
  1. SEMAGLUTIDE [Suspect]
     Active Substance: SEMAGLUTIDE
     Indication: Weight decreased
     Dosage: 1X A WEEK SUBCUTANEOUS
     Route: 058
     Dates: start: 20250113, end: 20250113
  2. AMBIEN [Concomitant]
     Active Substance: ZOLPIDEM TARTRATE

REACTIONS (5)
  - Accidental overdose [None]
  - Nausea [None]
  - Vomiting [None]
  - Diarrhoea [None]
  - Hypophagia [None]

NARRATIVE: CASE EVENT DATE: 20250113
